FAERS Safety Report 17403848 (Version 1)
Quarter: 2020Q1

REPORT INFORMATION
  Report Type: Spontaneous
  Country: US (occurrence: US)
  Receive Date: 20200211
  Receipt Date: 20200211
  Transmission Date: 20200409
  Serious: No
  Sender: FDA-Public Use
  Company Number: US-PERRIGO-19US013789

PATIENT
  Age: 62 Year
  Sex: Female
  Weight: 70.3 kg

DRUGS (4)
  1. SYNTHROID [Concomitant]
     Active Substance: LEVOTHYROXINE SODIUM
     Indication: AUTOIMMUNE THYROIDITIS
     Dosage: UNK
     Route: 065
     Dates: start: 2009
  2. CETIRIZINE HYDROCHLORIDE. [Suspect]
     Active Substance: CETIRIZINE HYDROCHLORIDE
     Indication: RHINORRHOEA
     Dosage: 1/2 TABLET, SINGLE
     Route: 048
     Dates: start: 20191108, end: 20191108
  3. CETIRIZINE HYDROCHLORIDE. [Suspect]
     Active Substance: CETIRIZINE HYDROCHLORIDE
     Indication: SNEEZING
  4. VITAMIN D NOS [Concomitant]
     Active Substance: VITAMIN D NOS
     Indication: VITAMIN D DECREASED
     Dosage: UNK
     Route: 065
     Dates: start: 2009

REACTIONS (8)
  - Underdose [Recovered/Resolved]
  - Oropharyngeal discomfort [Recovered/Resolved]
  - Dyspnoea [Recovered/Resolved]
  - Nasal discomfort [Recovered/Resolved]
  - Tongue discomfort [Recovered/Resolved]
  - Wrong technique in product usage process [Recovered/Resolved]
  - Feeling abnormal [Recovered/Resolved]
  - Feeling hot [Recovered/Resolved]

NARRATIVE: CASE EVENT DATE: 20191108
